FAERS Safety Report 5169155-8 (Version None)
Quarter: 2006Q4

REPORT INFORMATION
  Report Type: 
  Country: None (occurrence: None)
  Receive Date: 20061204
  Receipt Date: 20061122
  Transmission Date: 20070319
  Serious: Yes (Death, Hospitalization)
  Sender: FDA-Public Use
  Company Number: 2006141585

PATIENT
  Age: 69 Year
  Sex: Female
  Weight: 80 kg

DRUGS (3)
  1. SUTENT [Suspect]
     Indication: BREAST CANCER
     Dosage: 37.5 MG (12.5 MG, 3 IN 1 D), ORAL
     Route: 048
     Dates: start: 20061019
  2. VICODIN [Concomitant]
  3. XANAX [Concomitant]

REACTIONS (11)
  - ALANINE AMINOTRANSFERASE INCREASED [None]
  - ASPARTATE AMINOTRANSFERASE INCREASED [None]
  - ASPIRATION PLEURAL CAVITY [None]
  - BLOOD BILIRUBIN INCREASED [None]
  - BLOOD LACTATE DEHYDROGENASE INCREASED [None]
  - BREAST CANCER [None]
  - DEPRESSED LEVEL OF CONSCIOUSNESS [None]
  - DISORIENTATION [None]
  - HEPATIC ENZYME INCREASED [None]
  - HYPERSOMNIA [None]
  - MALIGNANT NEOPLASM PROGRESSION [None]
